FAERS Safety Report 6040684-8 (Version None)
Quarter: 2009Q1

REPORT INFORMATION
  Report Type: 
  Country: None (occurrence: None)
  Receive Date: 20090116
  Receipt Date: 20080506
  Transmission Date: 20090719
  Serious: No
  Sender: FDA-Public Use
  Company Number: US-BRISTOL-MYERS SQUIBB COMPANY-14176887

PATIENT
  Age: 57 Year
  Sex: Female
  Weight: 132 kg

DRUGS (3)
  1. ABILIFY [Suspect]
     Dosage: STARTED AT DOSE OF 5MG FOR FIVE DAYS INCREASED TO 10MG.
     Dates: start: 20080326, end: 20080430
  2. LAMICTAL [Concomitant]
  3. XANAX [Concomitant]

REACTIONS (1)
  - BLOOD GLUCOSE INCREASED [None]
